FAERS Safety Report 7025623-5 (Version None)
Quarter: 2010Q4

REPORT INFORMATION
  Report Type: 
  Country: None (occurrence: None)
  Receive Date: 20101003
  Receipt Date: 20100930
  Transmission Date: 20110411
  Serious: Yes (Other)
  Sender: FDA-Public Use
  Company Number: US-BRISTOL-MYERS SQUIBB COMPANY-15312465

PATIENT

DRUGS (1)
  1. IXEMPRA KIT [Suspect]
     Dosage: FREQ: PER WEEK FOR 3 WEEKS AND 1 WEEK OFF.
     Dates: start: 20100625, end: 20100801

REACTIONS (2)
  - BONE MARROW FAILURE [None]
  - VASCULAR PSEUDOANEURYSM [None]
